FAERS Safety Report 18517647 (Version 1)
Quarter: 2020Q4

REPORT INFORMATION
  Report Type: Spontaneous
  Country: GB (occurrence: GB)
  Receive Date: 20201118
  Receipt Date: 20201118
  Transmission Date: 20210114
  Serious: Yes (Hospitalization)
  Sender: FDA-Public Use
  Company Number: GB-TEVA-2020-GB-1849361

PATIENT
  Age: 84 Year
  Sex: Female
  Weight: 70 kg

DRUGS (12)
  1. VENTOLIN [Concomitant]
     Active Substance: ALBUTEROL SULFATE
  2. OMEPRAZOLE. [Concomitant]
     Active Substance: OMEPRAZOLE
  3. FOSTAIR [Concomitant]
     Active Substance: BECLOMETHASONE\FORMOTEROL
  4. ZOLPIDEM [Concomitant]
     Active Substance: ZOLPIDEM TARTRATE
  5. CALCICHEW [Concomitant]
     Active Substance: CALCIUM CARBONATE
  6. LOSARTAN. [Concomitant]
     Active Substance: LOSARTAN
  7. PREDNISOLONE. [Concomitant]
     Active Substance: PREDNISOLONE
  8. ACETYLSALICYLIC ACID [Concomitant]
     Active Substance: ASPIRIN
  9. BRALTUS [Concomitant]
     Active Substance: TIOTROPIUM BROMIDE
  10. LEVOTHYROXINE. [Concomitant]
     Active Substance: LEVOTHYROXINE
  11. BISOPROLOL [Concomitant]
     Active Substance: BISOPROLOL
  12. ALENDRONATE SODIUM. [Suspect]
     Active Substance: ALENDRONATE SODIUM
     Indication: OSTEOPOROSIS
     Dosage: 70MILLIGRAM
     Route: 048
     Dates: start: 20160706, end: 20200901

REACTIONS (1)
  - Atypical fracture [Not Recovered/Not Resolved]

NARRATIVE: CASE EVENT DATE: 20200901
